FAERS Safety Report 17955037 (Version 1)
Quarter: 2020Q2

REPORT INFORMATION
  Report Type: Spontaneous
  Country: US (occurrence: US)
  Receive Date: 20200629
  Receipt Date: 20200629
  Transmission Date: 20200714
  Serious: No
  Sender: FDA-Public Use
  Company Number: US-009507513-2006USA010278

PATIENT
  Age: 32 Year
  Sex: Female

DRUGS (1)
  1. NEXPLANON [Suspect]
     Active Substance: ETONOGESTREL
     Indication: CONTRACEPTION
     Dosage: 68 MILLIGRAM (MG), ONE TIME
     Route: 059
     Dates: start: 201907, end: 20200616

REACTIONS (1)
  - Device placement issue [Recovered/Resolved]

NARRATIVE: CASE EVENT DATE: 201907
